FAERS Safety Report 19431040 (Version 1)
Quarter: 2021Q2

REPORT INFORMATION
  Report Type: Spontaneous
  Country: US (occurrence: US)
  Receive Date: 20210618
  Receipt Date: 20210618
  Transmission Date: 20210717
  Serious: No
  Sender: FDA-Public Use
  Company Number: US-ROCHE-2757982

PATIENT
  Age: 52 Year
  Sex: Female
  Weight: 86.26 kg

DRUGS (3)
  1. ACTEMRA [Suspect]
     Active Substance: TOCILIZUMAB
  2. RITUXAN [Suspect]
     Active Substance: RITUXIMAB
     Indication: PRODUCT USED FOR UNKNOWN INDICATION
     Route: 065
  3. ACTEMRA [Suspect]
     Active Substance: TOCILIZUMAB
     Indication: RHEUMATOID ARTHRITIS
     Dosage: EVERY OTHER WEEK ;ONGOING: YES
     Route: 058
     Dates: start: 20201226

REACTIONS (5)
  - Drug delivery system issue [Unknown]
  - Device difficult to use [Unknown]
  - Accidental exposure to product [Unknown]
  - Underdose [Unknown]
  - Swelling [Unknown]

NARRATIVE: CASE EVENT DATE: 20210123
